FAERS Safety Report 7533335-4 (Version None)
Quarter: 2011Q2

REPORT INFORMATION
  Report Type: 
  Country: None (occurrence: None)
  Receive Date: 20110608
  Receipt Date: 20040722
  Transmission Date: 20111010
  Serious: Yes (Other)
  Sender: FDA-Public Use
  Company Number: PHFR2003GB01356

PATIENT
  Sex: Male

DRUGS (6)
  1. CLOZAPINE [Suspect]
     Indication: SCHIZOPHRENIA
     Dosage: 300 MG, QD
     Route: 048
     Dates: start: 20020115
  2. ROSIGLITAZONE [Concomitant]
     Dosage: 8 MG, QD
     Route: 048
  3. FERROUS SULFATE TAB [Concomitant]
     Dosage: 400MG/DAY
     Route: 048
  4. RAMIPRIL [Concomitant]
     Dosage: 10 MG, QD
     Route: 048
  5. LANSOPRAZOLE [Concomitant]
     Dosage: 30MG/DAY
     Route: 048
  6. METFORMIN HCL [Concomitant]
     Indication: DIABETES MELLITUS
     Dosage: 2G/DAY
     Route: 048

REACTIONS (2)
  - REFLUX OESOPHAGITIS [None]
  - HAEMOGLOBIN DECREASED [None]
